FAERS Safety Report 4325036-0 (Version None)
Quarter: 2004Q1

REPORT INFORMATION
  Report Type: 
  Country: None (occurrence: None)
  Receive Date: 20040323
  Receipt Date: 20040311
  Transmission Date: 20041129
  Serious: Yes (Other)
  Sender: FDA-Public Use
  Company Number: US-JNJFOC-20040303177

PATIENT
  Age: 60 Year
  Sex: Male
  Weight: 72.5755 kg

DRUGS (4)
  1. REMICADE [Suspect]
     Indication: PSORIATIC ARTHROPATHY
     Dosage: SEE IMAGE
     Route: 042
     Dates: start: 20020101
  2. REMICADE [Suspect]
     Indication: PSORIATIC ARTHROPATHY
     Dosage: SEE IMAGE
     Route: 042
     Dates: start: 20031210
  3. METHOTREXATE [Suspect]
     Indication: PSORIATIC ARTHROPATHY
  4. ARAVA [Concomitant]

REACTIONS (3)
  - DYSPEPSIA [None]
  - ULCER [None]
  - WEIGHT DECREASED [None]
